FAERS Safety Report 25575757 (Version 4)
Quarter: 2025Q4

REPORT INFORMATION
  Report Type: Report from Study
  Country: CA (occurrence: CA)
  Receive Date: 20250718
  Receipt Date: 20251002
  Transmission Date: 20260117
  Serious: Yes (Other)
  Sender: BIOGEN
  Company Number: CA-BIOGEN-2025BI01317395

PATIENT
  Age: 49 Year
  Sex: Female

DRUGS (2)
  1. TYSABRI [Suspect]
     Active Substance: NATALIZUMAB
     Indication: Multiple sclerosis
     Route: 050
     Dates: start: 20230329
  2. TYSABRI [Suspect]
     Active Substance: NATALIZUMAB
     Route: 050
     Dates: start: 20230329

REACTIONS (6)
  - Hernia [Not Recovered/Not Resolved]
  - Procedural haemorrhage [Recovered/Resolved]
  - Adhesion [Unknown]
  - Procedural pain [Unknown]
  - Musculoskeletal procedural complication [Unknown]
  - Fatigue [Unknown]

NARRATIVE: CASE EVENT DATE: 20250708
